FAERS Safety Report 11880165 (Version 1)
Quarter: 2015Q4

REPORT INFORMATION
  Report Type: Spontaneous
  Country: None (occurrence: None)
  Receive Date: 20151230
  Receipt Date: 20151230
  Transmission Date: 20160305
  Serious: Yes (Death)
  Sender: FDA-Public Use
  Company Number: None

PATIENT
  Age: 29 Year
  Sex: Female
  Weight: 77 kg

DRUGS (5)
  1. NEO HEALER SUPPOSITORIES [Concomitant]
  2. MUPIROCIN OINTMENT 5 GM [Suspect]
     Active Substance: MUPIROCIN
     Indication: HAEMORRHOIDS
     Route: 054
  3. LIDOCAINE 5% [Suspect]
     Active Substance: LIDOCAINE
     Indication: HAEMORRHOIDS
     Route: 054
  4. MUPIROCIN OINTMENT 5 GM [Suspect]
     Active Substance: MUPIROCIN
     Indication: ANAL FISTULA
     Route: 054
  5. LIDOCAINE 5% [Suspect]
     Active Substance: LIDOCAINE
     Indication: ANAL FISTULA
     Route: 054

REACTIONS (2)
  - Foetal death [None]
  - Maternal exposure during pregnancy [None]

NARRATIVE: CASE EVENT DATE: 20150607
